FAERS Safety Report 17543604 (Version 1)
Quarter: 2020Q1

REPORT INFORMATION
  Report Type: Spontaneous
  Country: US (occurrence: US)
  Receive Date: 20200316
  Receipt Date: 20200316
  Transmission Date: 20200409
  Serious: Yes (Other)
  Sender: FDA-Public Use
  Company Number: US-SA-2020SA065302

PATIENT
  Sex: Female

DRUGS (1)
  1. ZANTAC [Suspect]
     Active Substance: RANITIDINE HYDROCHLORIDE
     Dosage: TOOK APPROXIMATELY 150-300 MG EVERY DAY.
     Route: 065
     Dates: start: 2012, end: 2017

REACTIONS (6)
  - Hepatic cancer [Unknown]
  - Gastric cancer [Unknown]
  - Anxiety [Unknown]
  - Colorectal cancer [Unknown]
  - Impaired quality of life [Unknown]
  - Pain [Unknown]

NARRATIVE: CASE EVENT DATE: 201709
